FAERS Safety Report 4303119-9 (Version None)
Quarter: 2004Q1

REPORT INFORMATION
  Report Type: 
  Country: None (occurrence: None)
  Receive Date: 20040224
  Receipt Date: 20040212
  Transmission Date: 20041129
  Serious: Yes (Hospitalization)
  Sender: FDA-Public Use
  Company Number: DE-ROCHE-358900

PATIENT
  Age: 35 Year
  Sex: Female
  Weight: 50 kg

DRUGS (3)
  1. PEG-INTERFERON ALFA 2A (RO 25-8310) [Suspect]
     Route: 058
     Dates: start: 20021021, end: 20030404
  2. RIBAVIRIN (NON-ROCHE) [Suspect]
     Dosage: TRADE NAME REPORTED AS REBETOL.
     Route: 048
     Dates: start: 20021021
  3. CETIRIZINE HCL [Concomitant]
     Route: 048
     Dates: start: 20021218, end: 20030102

REACTIONS (20)
  - ABDOMINAL PAIN UPPER [None]
  - ALANINE AMINOTRANSFERASE INCREASED [None]
  - ANAEMIA [None]
  - ASPARTATE AMINOTRANSFERASE INCREASED [None]
  - BLOOD ALKALINE PHOSPHATASE INCREASED [None]
  - CACHEXIA [None]
  - DYSAESTHESIA [None]
  - GAIT DISTURBANCE [None]
  - INTERVERTEBRAL DISC PROTRUSION [None]
  - JOINT SWELLING [None]
  - MONONEURITIS [None]
  - NAUSEA [None]
  - OSTEOLYSIS [None]
  - PARAESTHESIA [None]
  - PYREXIA [None]
  - SINUS TACHYCARDIA [None]
  - SLEEP DISORDER [None]
  - VASCULITIS [None]
  - WEIGHT DECREASED [None]
  - YERSINIA INFECTION [None]
